FAERS Safety Report 4700598-X (Version None)
Quarter: 2005Q2

REPORT INFORMATION
  Report Type: 
  Country: None (occurrence: None)
  Receive Date: 20050627
  Receipt Date: 20050617
  Transmission Date: 20051028
  Serious: Yes (Hospitalization)
  Sender: FDA-Public Use
  Company Number: 2005089925

PATIENT
  Age: 62 Year
  Sex: Male

DRUGS (9)
  1. ATORVASTATIN CALCIUM [Suspect]
     Indication: MIXED HYPERLIPIDAEMIA
     Dosage: 10 MG (1 IN 1 D), UNKNOWN
     Route: 065
     Dates: start: 20050202, end: 20050101
  2. AMLODIPINE [Suspect]
     Indication: HYPERTENSION
     Dosage: UNKNOWN
     Route: 065
     Dates: start: 20050401, end: 20050401
  3. METFORMIN (METFORMIN) [Suspect]
     Indication: ILL-DEFINED DISORDER
     Dosage: UNKNOWN
     Route: 065
     Dates: end: 20050101
  4. CAPTOPRIL [Suspect]
     Indication: ILL-DEFINED DISORDER
     Dosage: UNKNOWN
     Route: 065
     Dates: end: 20050101
  5. FUROSEMIDE [Suspect]
     Indication: ILL-DEFINED DISORDER
     Dosage: UNKNOWN
     Route: 065
     Dates: end: 20050101
  6. INSULIN [Concomitant]
  7. RILMENIDINE DIHYDROGEN PHOSPHATE (RILMENIDINE DIHYDROGEN PHOSPHATE) [Concomitant]
  8. . [Concomitant]
  9. . [Concomitant]

REACTIONS (5)
  - BLOOD PRESSURE ABNORMAL [None]
  - DIALYSIS [None]
  - GENERALISED OEDEMA [None]
  - OEDEMA PERIPHERAL [None]
  - RENAL FAILURE ACUTE [None]
